FAERS Safety Report 23630845 (Version 2)
Quarter: 2024Q2

REPORT INFORMATION
  Report Type: Spontaneous
  Country: ES (occurrence: ES)
  Receive Date: 20240314
  Receipt Date: 20240422
  Transmission Date: 20240716
  Serious: Yes (Other)
  Sender: FDA-Public Use
  Company Number: ES-AMGEN-ESPSP2024048902

PATIENT

DRUGS (2)
  1. FILGRASTIM [Suspect]
     Active Substance: FILGRASTIM
     Indication: Prophylaxis
     Dosage: UNK
     Route: 065
  2. TIPIRACIL HYDROCHLORIDE\TRIFLURIDINE [Suspect]
     Active Substance: TIPIRACIL HYDROCHLORIDE\TRIFLURIDINE
     Indication: Colorectal cancer metastatic
     Dosage: 30 MILLIGRAM/M2
     Route: 065

REACTIONS (4)
  - Hepatotoxicity [Unknown]
  - Adverse event [Unknown]
  - Neutropenia [Unknown]
  - Asthenia [Unknown]
